FAERS Safety Report 4692291-7 (Version None)
Quarter: 2005Q2

REPORT INFORMATION
  Report Type: 
  Country: None (occurrence: None)
  Receive Date: 20050616
  Receipt Date: 20050525
  Transmission Date: 20051028
  Serious: Yes (Hospitalization)
  Sender: FDA-Public Use
  Company Number: EWC050544230

PATIENT
  Age: 64 Year
  Sex: Female

DRUGS (2)
  1. TERIPARATIDE [Suspect]
     Indication: OSTEOPOROSIS
     Dosage: 20 UG DAY
     Dates: start: 20050308, end: 20050524
  2. CALCIUM AND VITAMIN D [Concomitant]

REACTIONS (3)
  - CONVULSION [None]
  - TETANY [None]
  - TREATMENT NONCOMPLIANCE [None]
